FAERS Safety Report 10870635 (Version 1)
Quarter: 2015Q1

REPORT INFORMATION
  Report Type: Spontaneous
  Country: US (occurrence: US)
  Receive Date: 20150226
  Receipt Date: 20150226
  Transmission Date: 20150721
  Serious: No
  Sender: FDA-Public Use
  Company Number: US-TEVA-512744USA

PATIENT
  Sex: Female
  Weight: 50.85 kg

DRUGS (5)
  1. FLONASE GENERIC [Concomitant]
  2. SYNTHROID [Concomitant]
     Active Substance: LEVOTHYROXINE SODIUM
     Indication: AUTOIMMUNE THYROIDITIS
  3. ADVIL [Concomitant]
     Active Substance: IBUPROFEN
     Dosage: PRN
  4. ARMOUR THYROID [Concomitant]
     Active Substance: THYROID, PORCINE\THYROID, UNSPECIFIED
     Indication: AUTOIMMUNE THYROIDITIS
  5. AMPHETAMINE W/DEXTROAMPHETAMINE [Suspect]
     Active Substance: AMPHETAMINE SULFATE\DEXTROAMPHETAMINE
     Indication: ATTENTION DEFICIT/HYPERACTIVITY DISORDER
     Dosage: 10-20MG PO QAM, 10MG QPM
     Route: 048
     Dates: start: 201403

REACTIONS (7)
  - Nervousness [Unknown]
  - Musculoskeletal pain [Unknown]
  - Hearing impaired [Unknown]
  - Anxiety [Unknown]
  - Head discomfort [Unknown]
  - Nasal congestion [Unknown]
  - Ear disorder [Unknown]
